FAERS Safety Report 8133704-8 (Version None)
Quarter: 2012Q1

REPORT INFORMATION
  Report Type: 
  Country: None (occurrence: None)
  Receive Date: 20120213
  Receipt Date: 20120203
  Transmission Date: 20120608
  Serious: Yes (Hospitalization, Other)
  Sender: FDA-Public Use
  Company Number: US-ABBOTT-12P-163-0892465-00

PATIENT
  Sex: Female
  Weight: 53.118 kg

DRUGS (3)
  1. HUMIRA [Suspect]
     Indication: RHEUMATOID ARTHRITIS
  2. HUMIRA [Suspect]
     Indication: FISTULA
  3. HUMIRA [Suspect]
     Indication: CROHN'S DISEASE
     Route: 058
     Dates: start: 20110105

REACTIONS (7)
  - ADRENAL INSUFFICIENCY [None]
  - PANCREATIC DISORDER [None]
  - ABDOMINAL PAIN [None]
  - PANCREATITIS ACUTE [None]
  - INJECTION SITE HAEMATOMA [None]
  - DEHYDRATION [None]
  - HYPOTENSION [None]
